FAERS Safety Report 7351263-4 (Version None)
Quarter: 2011Q1

REPORT INFORMATION
  Report Type: 
  Country: None (occurrence: None)
  Receive Date: 20110314
  Receipt Date: 20110302
  Transmission Date: 20110831
  Serious: Yes (Hospitalization)
  Sender: FDA-Public Use
  Company Number: CH-BAYER-2011-018970

PATIENT
  Age: 30 Year
  Sex: Male

DRUGS (3)
  1. ASPIRIN [Suspect]
     Dosage: 1 DF, UNK
     Route: 048
     Dates: start: 20110203, end: 20110203
  2. DAFALGAN [Suspect]
     Dosage: DAILY DOSE 1500 MG
     Route: 048
     Dates: start: 20110130, end: 20110201
  3. LYSOPAIN [Suspect]

REACTIONS (1)
  - STEVENS-JOHNSON SYNDROME [None]
